FAERS Safety Report 10337524 (Version 3)
Quarter: 2015Q1

REPORT INFORMATION
  Report Type: Spontaneous
  Country: US (occurrence: US)
  Receive Date: 20140724
  Receipt Date: 20150119
  Transmission Date: 20150720
  Serious: No
  Sender: FDA-Public Use
  Company Number: US-UNITED THERAPEUTICS-UTC-046938

PATIENT
  Age: 39 Year
  Sex: Female
  Weight: 53.52 kg

DRUGS (5)
  1. LETAIRIS [Concomitant]
     Active Substance: AMBRISENTAN
  2. REVATIO [Concomitant]
     Active Substance: SILDENAFIL CITRATE
  3. ADCIRCA [Concomitant]
     Active Substance: TADALAFIL
  4. REMODULIN [Suspect]
     Active Substance: TREPROSTINIL
     Dosage: 0.038 UG/KG/MIN
     Route: 041
     Dates: start: 20131105
  5. REMODULIN [Suspect]
     Active Substance: TREPROSTINIL
     Dosage: 0.051 ?G/KG/MIN, CONTINUING
     Route: 058
     Dates: start: 20140404

REACTIONS (10)
  - Injection site pruritus [Unknown]
  - Injection site vesicles [Unknown]
  - Injection site haemorrhage [Unknown]
  - Impaired healing [Unknown]
  - Injection site discharge [Unknown]
  - Injection site erythema [Unknown]
  - Device allergy [Unknown]
  - Injection site inflammation [Unknown]
  - Pruritus [Unknown]
  - Drug dose omission [Unknown]

NARRATIVE: CASE EVENT DATE: 201404
